FAERS Safety Report 10305310 (Version 4)
Quarter: 2015Q1

REPORT INFORMATION
  Report Type: Report from Study
  Country: JP (occurrence: JP)
  Receive Date: 20140715
  Receipt Date: 20150205
  Transmission Date: 20150720
  Serious: Yes (Other)
  Sender: FDA-Public Use
  Company Number: JP-ROCHE-1430749

PATIENT

DRUGS (2)
  1. RITUXIMAB [Suspect]
     Active Substance: RITUXIMAB
     Indication: NEPHROTIC SYNDROME
     Dosage: (MAXIMUM 500 MG) ONCE WEEKLY FOR 4 WEEKS.
     Route: 042
  2. RITUXIMAB [Suspect]
     Active Substance: RITUXIMAB
     Indication: NEPHROTIC SYNDROME

REACTIONS (16)
  - Gingivitis [Unknown]
  - Adrenal insufficiency [Unknown]
  - Lymphopenia [Unknown]
  - Hypertension [Unknown]
  - Respiratory disorder [Unknown]
  - Acute kidney injury [Unknown]
  - Cystitis haemorrhagic [Unknown]
  - Neutropenia [Unknown]
  - Gastroenteritis [Unknown]
  - Urticaria [Unknown]
  - Cellulitis [Unknown]
  - Alanine aminotransferase increased [Unknown]
  - Gastritis [Unknown]
  - Blood creatine phosphokinase increased [Unknown]
  - Infection [Unknown]
  - Hyperuricaemia [Unknown]
